FAERS Safety Report 7582424-7 (Version None)
Quarter: 2011Q2

REPORT INFORMATION
  Report Type: 
  Country: None (occurrence: None)
  Receive Date: 20110630
  Receipt Date: 20110626
  Transmission Date: 20111010
  Serious: Yes (Death, Life-Threatening, Hospitalization, Other)
  Sender: FDA-Public Use
  Company Number: CH-ELI_LILLY_AND_COMPANY-CH201105005156

PATIENT
  Age: 46 Year
  Sex: Female
  Weight: 88 kg

DRUGS (8)
  1. CYMBALTA [Suspect]
     Dosage: 120 MG, QD
     Route: 048
     Dates: start: 20100819
  2. LORAZEPAM [Concomitant]
  3. LAMICTAL [Concomitant]
     Dosage: 200 MG, QD
     Route: 048
     Dates: start: 20090101
  4. ABILIFY [Concomitant]
     Dosage: 5 MG, QD
     Route: 048
     Dates: start: 20100723, end: 20100908
  5. TRAZODONE HCL [Concomitant]
  6. ABILIFY [Concomitant]
     Dosage: 5 MG, QD
     Route: 048
     Dates: start: 20101022, end: 20101026
  7. ABILIFY [Concomitant]
     Dosage: 10 MG, QD
     Route: 048
     Dates: start: 20100909, end: 20101007
  8. SEROQUEL [Concomitant]
     Dosage: 50 MG, UNK
     Route: 048
     Dates: start: 20101027

REACTIONS (4)
  - DEPRESSION [None]
  - SUICIDE ATTEMPT [None]
  - COMPLETED SUICIDE [None]
  - TOXICITY TO VARIOUS AGENTS [None]
